FAERS Safety Report 11042782 (Version 1)
Quarter: 2015Q2

REPORT INFORMATION
  Report Type: Spontaneous
  Country: FR (occurrence: FR)
  Receive Date: 20150417
  Receipt Date: 20150417
  Transmission Date: 20150821
  Serious: Yes (Hospitalization)
  Sender: FDA-Public Use
  Company Number: FR-ROCHE-1563888

PATIENT
  Age: 92 Year
  Sex: Male

DRUGS (8)
  1. STILNOX [Concomitant]
     Active Substance: ZOLPIDEM TARTRATE
  2. TEMERIT [Concomitant]
     Active Substance: NEBIVOLOL
  3. FUROSEMIDE. [Concomitant]
     Active Substance: FUROSEMIDE
  4. FLECTOR [Concomitant]
     Active Substance: DICLOFENAC EPOLAMINE
  5. DISCOTRINE [Concomitant]
     Active Substance: NITROGLYCERIN
  6. KARDEGIC [Concomitant]
     Active Substance: ASPIRIN LYSINE
  7. SEROPLEX [Concomitant]
     Active Substance: ESCITALOPRAM OXALATE
  8. TAMIFLU [Suspect]
     Active Substance: OSELTAMIVIR PHOSPHATE
     Indication: INFLUENZA
     Route: 048
     Dates: start: 20150305

REACTIONS (1)
  - Melaena [Recovered/Resolved]

NARRATIVE: CASE EVENT DATE: 20150308
